FAERS Safety Report 16560739 (Version 1)
Quarter: 2019Q3

REPORT INFORMATION
  Report Type: Spontaneous
  Country: US (occurrence: US)
  Receive Date: 20190711
  Receipt Date: 20190711
  Transmission Date: 20191004
  Serious: No
  Sender: FDA-Public Use
  Company Number: US-SA-2019SA185677

PATIENT
  Age: 55 Year
  Sex: Female

DRUGS (1)
  1. PRALUENT [Suspect]
     Active Substance: ALIROCUMAB
     Indication: HYPERCHOLESTEROLAEMIA
     Dosage: 75 MG, QOW
     Route: 058
     Dates: start: 20190611, end: 20190626

REACTIONS (6)
  - Pollakiuria [Unknown]
  - Dysuria [Unknown]
  - Abdominal pain [Unknown]
  - Insomnia [Unknown]
  - Palpitations [Unknown]
  - Feeling jittery [Unknown]

NARRATIVE: CASE EVENT DATE: 20190611
